FAERS Safety Report 11253253 (Version 1)
Quarter: 2015Q3

REPORT INFORMATION
  Report Type: Spontaneous
  Country: US (occurrence: US)
  Receive Date: 20150709
  Receipt Date: 20150709
  Transmission Date: 20151125
  Serious: No
  Sender: FDA-Public Use
  Company Number: US-TEVA-509750USA

PATIENT
  Sex: Female
  Weight: 53.12 kg

DRUGS (1)
  1. VENLAFAXINE [Suspect]
     Active Substance: VENLAFAXINE HYDROCHLORIDE
     Indication: ANXIETY
     Dosage: 37.5 MILLIGRAM DAILY;
     Route: 065
     Dates: start: 201407, end: 20140831

REACTIONS (2)
  - Pruritus [Recovered/Resolved]
  - Rash [Unknown]
